FAERS Safety Report 7121338-3 (Version None)
Quarter: 2010Q4

REPORT INFORMATION
  Report Type: 
  Country: None (occurrence: None)
  Receive Date: 20101119
  Receipt Date: 20101119
  Transmission Date: 20110411
  Serious: No
  Sender: FDA-Public Use
  Company Number: None

PATIENT

DRUGS (1)
  1. LORAZEPAM [Suspect]
     Dates: start: 20101016, end: 20101016

REACTIONS (1)
  - PRODUCT PACKAGING QUANTITY ISSUE [None]
